FAERS Safety Report 25214173 (Version 1)
Quarter: 2025Q2

REPORT INFORMATION
  Report Type: Report from Study
  Country: IN (occurrence: IN)
  Receive Date: 20250418
  Receipt Date: 20250418
  Transmission Date: 20250717
  Serious: Yes (Other)
  Sender: ROCHE
  Company Number: IN-002147023-NVSC2025IN063270

PATIENT
  Age: 41 Year
  Sex: Female
  Weight: 62 kg

DRUGS (1)
  1. RANIBIZUMAB [Suspect]
     Active Substance: RANIBIZUMAB
     Indication: Choroidal neovascularisation
     Dosage: 0.5 MG, QMO
     Route: 050
     Dates: start: 20231218

REACTIONS (3)
  - Subretinal fibrosis [Recovering/Resolving]
  - Detachment of retinal pigment epithelium [Recovering/Resolving]
  - Retinal degeneration [Unknown]
